FAERS Safety Report 6432680-3 (Version None)
Quarter: 2009Q4

REPORT INFORMATION
  Report Type: 
  Country: None (occurrence: None)
  Receive Date: 20091109
  Receipt Date: 20091030
  Transmission Date: 20100525
  Serious: Yes (Death)
  Sender: FDA-Public Use
  Company Number: GXKR2009AR11982

PATIENT
  Age: 62 Year
  Sex: Male

DRUGS (1)
  1. PREDNISOLONE [Suspect]
     Dosage: HIGH DOSE
     Route: 065

REACTIONS (8)
  - ABDOMINAL PAIN [None]
  - ANAEMIA [None]
  - DIARRHOEA [None]
  - LUNG INFILTRATION [None]
  - LYMPHOCYTOSIS [None]
  - PETECHIAE [None]
  - STRONGYLOIDIASIS [None]
  - VASCULITIS [None]
